FAERS Safety Report 8790730 (Version 1)
Quarter: 2012Q4

REPORT INFORMATION
  Report Type: 
  Country: US (occurrence: None)
  Receive Date: 20120912
  Receipt Date: 20120912
  Transmission Date: 20130627
  Serious: Yes (Hospitalization)
  Sender: FDA-Public Use
  Company Number: None

PATIENT
  Sex: Female
  Weight: 67.5 kg

DRUGS (7)
  1. CYCLOPHOSPHAMIDE [Suspect]
     Dates: start: 20120903, end: 20120903
  2. DOXORUBICIN HYDROCHLORIDE [Suspect]
     Dates: start: 20120830, end: 20120903
  3. ETOPOSIDE [Suspect]
     Dates: start: 20120830, end: 20120903
  4. PREDNISONE [Suspect]
     Dates: start: 20120829, end: 20120903
  5. PREDNISONE [Suspect]
  6. RITUXIMAB [Suspect]
     Dates: start: 20120829, end: 20120829
  7. VINCRISTINE SULFATE [Suspect]
     Dates: start: 20120830, end: 20120903

REACTIONS (4)
  - Dehydration [None]
  - Diarrhoea [None]
  - Cardiac arrest [None]
  - Coronary artery stenosis [None]
